FAERS Safety Report 6962340-1 (Version None)
Quarter: 2010Q3

REPORT INFORMATION
  Report Type: 
  Country: None (occurrence: None)
  Receive Date: 20100902
  Receipt Date: 20100826
  Transmission Date: 20110219
  Serious: Yes (Hospitalization)
  Sender: FDA-Public Use
  Company Number: AU-SANOFI-AVENTIS-2010SA050606

PATIENT
  Sex: Female

DRUGS (1)
  1. TELFAST [Suspect]
     Route: 065

REACTIONS (1)
  - DACRYOSTENOSIS ACQUIRED [None]
